FAERS Safety Report 15832864 (Version 5)
Quarter: 2019Q3

REPORT INFORMATION
  Report Type: Report from Study
  Country: AU (occurrence: AU)
  Receive Date: 20190116
  Receipt Date: 20190926
  Transmission Date: 20191004
  Serious: Yes (Other)
  Sender: FDA-Public Use
  Company Number: AU-JNJFOC-20190108403

PATIENT
  Age: 87 Year
  Sex: Male

DRUGS (6)
  1. ABIRATERONE. [Concomitant]
     Active Substance: ABIRATERONE ACETATE
     Indication: PROSTATE CANCER METASTATIC
     Route: 048
  2. ZOLADEX [Concomitant]
     Active Substance: GOSERELIN ACETATE
     Indication: PROSTATE CANCER
     Dosage: EVERY 3 MONTHS INTO TUMMY
  3. PREDNISONE. [Concomitant]
     Active Substance: PREDNISONE
     Indication: PROSTATE CANCER
     Route: 048
  4. IMBRUVICA [Suspect]
     Active Substance: IBRUTINIB
     Indication: CHRONIC LYMPHOCYTIC LEUKAEMIA
     Route: 048
     Dates: start: 201806
  5. IMBRUVICA [Suspect]
     Active Substance: IBRUTINIB
     Dosage: 140 MG X 2 ON MONDAY, TUESDAY, WEDNESDAY AND 140 MG X 1 THE OTHER DAYS
     Route: 048
     Dates: start: 20180701
  6. IMBRUVICA [Suspect]
     Active Substance: IBRUTINIB
     Dosage: 140 MG EVERY OTHER DAY
     Route: 048

REACTIONS (8)
  - Skin cancer [Unknown]
  - Arthritis [Unknown]
  - Abnormal clotting factor [Unknown]
  - Peripheral swelling [Not Recovered/Not Resolved]
  - Contusion [Unknown]
  - Skin ulcer [Unknown]
  - Skin discolouration [Unknown]
  - Post procedural haemorrhage [Unknown]
